FAERS Safety Report 5971760-3 (Version None)
Quarter: 2008Q4

REPORT INFORMATION
  Report Type: 
  Country: None (occurrence: None)
  Receive Date: 20081201
  Receipt Date: 20081121
  Transmission Date: 20090506
  Serious: Yes (Other)
  Sender: FDA-Public Use
  Company Number: JO-JNJFOC-20081105451

PATIENT
  Age: 49 Year
  Sex: Female

DRUGS (7)
  1. INFLIXIMAB [Suspect]
     Route: 042
  2. INFLIXIMAB [Suspect]
     Indication: BEHCET'S SYNDROME
     Dosage: WEEK 0, 2, AND 6
     Route: 042
  3. CYCLOSPORINE [Concomitant]
  4. CYCLOPHOSPHAMIDE [Concomitant]
  5. METHOTREXATE [Concomitant]
  6. CALCIUM [Concomitant]
  7. ALFACALCIDOL [Concomitant]

REACTIONS (1)
  - OSTEOMALACIA [None]
